FAERS Safety Report 4510033-2 (Version None)
Quarter: 2004Q4

REPORT INFORMATION
  Report Type: 
  Country: None (occurrence: None)
  Receive Date: 20041119
  Receipt Date: 20041108
  Transmission Date: 20050328
  Serious: Yes (Disabling)
  Sender: FDA-Public Use
  Company Number: 2004GB02664

PATIENT
  Age: 59 Year
  Sex: Female
  Weight: 115 kg

DRUGS (1)
  1. FELODIPINE [Suspect]
     Indication: HYPERTENSION
     Dosage: 10 MG DAILY PO
     Route: 048
     Dates: start: 20040614, end: 20041011

REACTIONS (3)
  - PAIN [None]
  - PURPURA [None]
  - RASH ERYTHEMATOUS [None]
